FAERS Safety Report 9180862 (Version 1)
Quarter: 2013Q1

REPORT INFORMATION
  Report Type: Spontaneous
  Country: US (occurrence: None)
  Receive Date: 20130320
  Receipt Date: 20130320
  Transmission Date: 20140127
  Serious: Yes (Other)
  Sender: FDA-Public Use
  Company Number: 1630057

PATIENT
  Age: 51 Year
  Sex: Female

DRUGS (2)
  1. KETOROLAC TROMETHAMINE [Suspect]
     Indication: PAIN
     Route: 042
     Dates: start: 20130306
  2. HYDROMORPHONE [Concomitant]

REACTIONS (3)
  - Erythema [None]
  - Rash [None]
  - Injection site pain [None]
